FAERS Safety Report 6509318-X (Version None)
Quarter: 2009Q4

REPORT INFORMATION
  Report Type: 
  Country: None (occurrence: None)
  Receive Date: 20091222
  Receipt Date: 20091211
  Transmission Date: 20100525
  Serious: Yes (Hospitalization)
  Sender: FDA-Public Use
  Company Number: IT-RANBAXY-2009RR-29752

PATIENT
  Age: 64 Year
  Sex: Male

DRUGS (2)
  1. CHLOROQUINE PHOSPHATE [Suspect]
     Indication: MALARIA
     Dosage: UNK
     Route: 048
  2. CHLOROQUINE PHOSPHATE [Suspect]
     Indication: PROPHYLAXIS

REACTIONS (1)
  - CARDIOTOXICITY [None]
